FAERS Safety Report 10260138 (Version 1)
Quarter: 2014Q2

REPORT INFORMATION
  Report Type: Spontaneous
  Country: NZ (occurrence: NZ)
  Receive Date: 20140625
  Receipt Date: 20140625
  Transmission Date: 20141212
  Serious: Yes (Hospitalization)
  Sender: FDA-Public Use
  Company Number: NZ-ABBVIE-14P-118-1250138-00

PATIENT
  Sex: Female

DRUGS (2)
  1. HUMIRA [Suspect]
     Indication: RHEUMATOID ARTHRITIS
  2. METHOTREXATE [Concomitant]
     Indication: PRODUCT USED FOR UNKNOWN INDICATION

REACTIONS (9)
  - Foot operation [Unknown]
  - Drug ineffective [Unknown]
  - Fibromyalgia [Unknown]
  - Insomnia [Unknown]
  - Urinary tract infection [Unknown]
  - Foot operation [Unknown]
  - Foot operation [Unknown]
  - Foot operation [Unknown]
  - Foot operation [Unknown]
